FAERS Safety Report 20119131 (Version 1)
Quarter: 2021Q4

REPORT INFORMATION
  Report Type: Spontaneous
  Country: US (occurrence: US)
  Receive Date: 20211126
  Receipt Date: 20211126
  Transmission Date: 20220303
  Serious: No
  Sender: FDA-Public Use
  Company Number: US-BEH-2021138333

PATIENT
  Sex: Male

DRUGS (4)
  1. IDELVION [Suspect]
     Active Substance: COAGULATION FACTOR IX RECOMBINANT HUMAN
     Indication: Factor VIII deficiency
     Dosage: 2100 INTERNATIONAL UNIT, QW
     Route: 042
     Dates: start: 20210728
  2. IDELVION [Suspect]
     Active Substance: COAGULATION FACTOR IX RECOMBINANT HUMAN
     Indication: Factor VIII deficiency
     Dosage: 2100 INTERNATIONAL UNIT, QW
     Route: 042
     Dates: start: 20210728
  3. IDELVION [Suspect]
     Active Substance: COAGULATION FACTOR IX RECOMBINANT HUMAN
     Indication: Prophylaxis
     Dosage: UNK, PRN
     Route: 042
     Dates: start: 20210728
  4. IDELVION [Suspect]
     Active Substance: COAGULATION FACTOR IX RECOMBINANT HUMAN
     Indication: Prophylaxis
     Dosage: UNK, PRN
     Route: 042
     Dates: start: 20210728

REACTIONS (4)
  - Limb injury [Unknown]
  - Nail discolouration [Unknown]
  - No adverse event [Unknown]
  - Off label use [Unknown]
